FAERS Safety Report 9482588 (Version 1)
Quarter: 2013Q3

REPORT INFORMATION
  Report Type: Spontaneous
  Country: AR (occurrence: AR)
  Receive Date: 20130828
  Receipt Date: 20130828
  Transmission Date: 20140515
  Serious: Yes (Death, Life-Threatening, Hospitalization, Other)
  Sender: FDA-Public Use
  Company Number: AR-B.I. PHARMACEUTICALS,INC./RIDGEFIELD-2013-RA-00248RA

PATIENT
  Age: 86 Year
  Sex: Male

DRUGS (8)
  1. PRADAXA [Suspect]
     Indication: THROMBOSIS PROPHYLAXIS
     Dosage: 150 MG
     Route: 048
     Dates: start: 20120216, end: 20120218
  2. ESOMEPRAZOLE [Concomitant]
     Route: 048
  3. TELMISARTAN [Concomitant]
     Indication: HYPERTENSION
     Route: 048
  4. ALLOPURINOL [Concomitant]
     Route: 048
  5. FUROSEMIDA [Concomitant]
     Indication: HYPERTENSION
     Route: 048
  6. SIMVASTATINE [Concomitant]
     Route: 048
  7. FINASTERIDE [Concomitant]
     Route: 048
  8. CINITRAPIDE [Concomitant]

REACTIONS (3)
  - Pneumonia aspiration [Fatal]
  - Rectal haemorrhage [Recovered/Resolved]
  - Haemodynamic instability [Unknown]
